FAERS Safety Report 8367463-0 (Version None)
Quarter: 2012Q2

REPORT INFORMATION
  Report Type: 
  Country: None (occurrence: None)
  Receive Date: 20120517
  Receipt Date: 20120220
  Transmission Date: 20120825
  Serious: Yes (Other)
  Sender: FDA-Public Use
  Company Number: US-GLAXOSMITHKLINE-A0967034A

PATIENT
  Age: 46 Year
  Sex: Female
  Weight: 130 kg

DRUGS (1)
  1. VOTRIENT [Suspect]
     Indication: URINARY TRACT NEOPLASM
     Dosage: 800MG PER DAY
     Route: 048
     Dates: start: 20120204, end: 20120214

REACTIONS (1)
  - HEPATIC ENZYME INCREASED [None]
